FAERS Safety Report 7284968-4 (Version None)
Quarter: 2011Q1

REPORT INFORMATION
  Report Type: 
  Country: None (occurrence: None)
  Receive Date: 20110210
  Receipt Date: 20110203
  Transmission Date: 20110831
  Serious: Yes (Hospitalization, Other)
  Sender: FDA-Public Use
  Company Number: JP-PFIZER INC-2009232020

PATIENT
  Age: 68 Year
  Sex: Male
  Weight: 74.4 kg

DRUGS (11)
  1. PLASMA [Concomitant]
     Dosage: UNK
     Route: 042
  2. OXYCONTIN [Suspect]
     Dosage: UNK
     Route: 048
     Dates: end: 20071130
  3. RED BLOOD CELLS [Concomitant]
     Dosage: UNK
     Route: 042
  4. PARIET [Suspect]
     Dosage: UNK
     Route: 048
     Dates: end: 20071130
  5. DECADRON [Concomitant]
     Dosage: UNK
     Route: 048
     Dates: start: 20071016
  6. LASIX [Suspect]
     Dosage: UNK
     Route: 048
     Dates: start: 20070925, end: 20071130
  7. BAKTAR [Suspect]
     Dosage: UNK
     Route: 048
     Dates: end: 20071130
  8. VORICONAZOLE [Suspect]
     Dosage: 200 MG, 2X/DAY
     Route: 048
     Dates: start: 20070922, end: 20071129
  9. LENDORM [Suspect]
     Dosage: UNK
     Route: 048
     Dates: end: 20071130
  10. PLATELETS, HUMAN BLOOD [Concomitant]
     Dosage: UNK
     Route: 042
  11. VORICONAZOLE [Suspect]
     Indication: ASPERGILLOSIS
     Dosage: 300 MG, 2X/DAY
     Route: 048
     Dates: start: 20070921, end: 20070921

REACTIONS (2)
  - HEPATIC ENCEPHALOPATHY [None]
  - HYPERAMMONAEMIA [None]
